FAERS Safety Report 4545967-6 (Version None)
Quarter: 2005Q1

REPORT INFORMATION
  Report Type: 
  Country: None (occurrence: None)
  Receive Date: 20050103
  Receipt Date: 20041216
  Transmission Date: 20050727
  Serious: Yes (Hospitalization)
  Sender: FDA-Public Use
  Company Number: USA020414459

PATIENT
  Age: 72 Year
  Sex: Male
  Weight: 68 kg

DRUGS (7)
  1. PROZAC [Suspect]
     Indication: BIPOLAR I DISORDER
  2. PROZAC WEEKLY [Suspect]
     Indication: BIPOLAR I DISORDER
     Dosage: 90 MG/1 WEEK
  3. HUMALOG [Concomitant]
  4. DEPAKOTE [Concomitant]
  5. COUMADIN [Concomitant]
  6. DIOVAN [Concomitant]
  7. CARDIZEM [Concomitant]

REACTIONS (8)
  - ABNORMAL DREAMS [None]
  - BLOOD PRESSURE INCREASED [None]
  - COUGH [None]
  - DRUG INEFFECTIVE [None]
  - HEADACHE [None]
  - LIVER FUNCTION TEST ABNORMAL [None]
  - PALPITATIONS [None]
  - RENAL FUNCTION TEST ABNORMAL [None]
